APPROVED DRUG PRODUCT: FENOFIBRATE
Active Ingredient: FENOFIBRATE
Strength: 145MG
Dosage Form/Route: TABLET;ORAL
Application: A200884 | Product #002
Applicant: SUN PHARMACEUTICAL INDUSTRIES LTD
Approved: Sep 7, 2017 | RLD: No | RS: No | Type: DISCN